FAERS Safety Report 4344573-6 (Version None)
Quarter: 2004Q1

REPORT INFORMATION
  Report Type: 
  Country: None (occurrence: None)
  Receive Date: 20040325
  Receipt Date: 20031208
  Transmission Date: 20041129
  Serious: No
  Sender: FDA-Public Use
  Company Number: USA031254228

PATIENT
  Age: 72 Year
  Sex: Female
  Weight: 44 kg

DRUGS (1)
  1. FORTEO [Suspect]
     Indication: OSTEOPOROSIS
     Dates: start: 20031112, end: 20031205

REACTIONS (2)
  - BACK PAIN [None]
  - DIARRHOEA [None]
